FAERS Safety Report 9652852 (Version 1)
Quarter: 2013Q4

REPORT INFORMATION
  Report Type: Spontaneous
  Country: GB (occurrence: GB)
  Receive Date: 20131029
  Receipt Date: 20131029
  Transmission Date: 20140711
  Serious: Yes (Disabling)
  Sender: FDA-Public Use
  Company Number: GB-PFIZER INC-2013302734

PATIENT
  Age: 52 Year
  Sex: Female
  Weight: 130 kg

DRUGS (9)
  1. TOVIAZ [Suspect]
     Indication: BLADDER DYSFUNCTION
     Dosage: 4 MG, UNK
     Route: 048
     Dates: start: 20130623, end: 20130624
  2. BUSPIRONE [Concomitant]
     Dosage: UNK
  3. SIMVASTATIN [Concomitant]
     Dosage: UNK
  4. QUETIAPINE [Concomitant]
     Dosage: UNK
  5. METFORMIN [Concomitant]
     Dosage: UNK
  6. RAMIPRIL [Concomitant]
     Dosage: UNK
  7. ASPIRIN [Concomitant]
     Dosage: UNK
  8. LANSOPRAZOLE [Concomitant]
     Dosage: UNK
  9. VENLAFAXINE [Concomitant]
     Dosage: UNK

REACTIONS (10)
  - Hypersensitivity [Recovered/Resolved]
  - Lip swelling [Recovered/Resolved]
  - Hypoaesthesia oral [Recovering/Resolving]
  - Paraesthesia oral [Recovering/Resolving]
  - Throat tightness [Recovered/Resolved]
  - Vomiting [Recovered/Resolved]
  - Malaise [Recovered/Resolved]
  - Syncope [Recovered/Resolved]
  - Confusional state [Recovered/Resolved]
  - Disturbance in attention [Recovered/Resolved]
